FAERS Safety Report 16757742 (Version 1)
Quarter: 2019Q3

REPORT INFORMATION
  Report Type: Spontaneous
  Country: IT (occurrence: IT)
  Receive Date: 20190830
  Receipt Date: 20190830
  Transmission Date: 20191005
  Serious: Yes (Other)
  Sender: FDA-Public Use
  Company Number: IT-AUROBINDO-AUR-APL-2019-056867

PATIENT

DRUGS (4)
  1. ICLUSIG [Interacting]
     Active Substance: PONATINIB
     Indication: ACUTE LYMPHOCYTIC LEUKAEMIA
     Dosage: 30 MILLIGRAM, ONCE A DAY
     Route: 065
  2. VORICONAZOLE. [Suspect]
     Active Substance: VORICONAZOLE
     Indication: BRONCHOPULMONARY ASPERGILLOSIS
     Dosage: 100 MILLIGRAM
     Route: 065
  3. ICLUSIG [Interacting]
     Active Substance: PONATINIB
     Dosage: 15 MILLIGRAM, ONCE A DAY
     Route: 065
  4. ICLUSIG [Interacting]
     Active Substance: PONATINIB
     Dosage: 45 MILLIGRAM, ONCE A DAY
     Route: 065
     Dates: start: 201612

REACTIONS (6)
  - Insomnia [Unknown]
  - Psychotic disorder [Unknown]
  - Hallucination [Unknown]
  - Atrial fibrillation [Unknown]
  - Drug interaction [Unknown]
  - Neuropathy peripheral [Unknown]

NARRATIVE: CASE EVENT DATE: 201712
